FAERS Safety Report 23255704 (Version 1)
Quarter: 2023Q4

REPORT INFORMATION
  Report Type: Spontaneous
  Country: CN (occurrence: CN)
  Receive Date: 20231204
  Receipt Date: 20231204
  Transmission Date: 20240110
  Serious: Yes (Other)
  Sender: FDA-Public Use
  Company Number: None

PATIENT
  Age: 64 Year
  Sex: Male

DRUGS (8)
  1. IFOSFAMIDE [Suspect]
     Active Substance: IFOSFAMIDE
     Indication: Bone cancer
     Dosage: 2 G, ONE TIME IN ONE DAY, D1-3
     Route: 041
     Dates: start: 20231103, end: 20231105
  2. IFOSFAMIDE [Suspect]
     Active Substance: IFOSFAMIDE
     Indication: Osteosarcoma
  3. MESNA [Suspect]
     Active Substance: MESNA
     Indication: Bone cancer
     Dosage: 0.4 G, THREE TIMES IN ONE DAY, D1-3
     Route: 065
     Dates: start: 20231103, end: 20231105
  4. MESNA [Suspect]
     Active Substance: MESNA
     Indication: Osteosarcoma
  5. CISPLATIN [Suspect]
     Active Substance: CISPLATIN
     Indication: Bone cancer
     Dosage: 40 MG, ONE TIME IN ONE DAY(LYOPHILIZED), D1-3(Q3W)
     Route: 041
     Dates: start: 20231103, end: 20231105
  6. CISPLATIN [Suspect]
     Active Substance: CISPLATIN
     Indication: Osteosarcoma
  7. EPIRUBICIN HYDROCHLORIDE [Suspect]
     Active Substance: EPIRUBICIN HYDROCHLORIDE
     Indication: Bone cancer
     Dosage: 50 MG, ONE TIME IN ONE DAY, D1-2
     Route: 041
     Dates: start: 20231103, end: 20231104
  8. EPIRUBICIN HYDROCHLORIDE [Suspect]
     Active Substance: EPIRUBICIN HYDROCHLORIDE
     Indication: Osteosarcoma

REACTIONS (2)
  - Myelosuppression [Unknown]
  - Full blood count decreased [Unknown]

NARRATIVE: CASE EVENT DATE: 20231123
